FAERS Safety Report 9766246 (Version 1)
Quarter: 2013Q4

REPORT INFORMATION
  Report Type: Spontaneous
  Country: US (occurrence: US)
  Receive Date: 20131217
  Receipt Date: 20131217
  Transmission Date: 20140711
  Serious: No
  Sender: FDA-Public Use
  Company Number: US-GLAXOSMITHKLINE-A1040736A

PATIENT
  Age: 51 Year
  Sex: Male
  Weight: 92.7 kg

DRUGS (1)
  1. MEKINIST [Suspect]
     Indication: MALIGNANT MELANOMA
     Dosage: 2MG PER DAY
     Route: 065
     Dates: start: 20130629

REACTIONS (1)
  - Dermatitis acneiform [Recovering/Resolving]
